FAERS Safety Report 4791765-8 (Version None)
Quarter: 2005Q4

REPORT INFORMATION
  Report Type: 
  Country: None (occurrence: None)
  Receive Date: 20051007
  Receipt Date: 20050926
  Transmission Date: 20060501
  Serious: Yes (Death)
  Sender: FDA-Public Use
  Company Number: US-BRISTOL-MYERS SQUIBB COMPANY-13137260

PATIENT

DRUGS (2)
  1. CYCLOPHOSPHAMIDE [Suspect]
     Indication: EPSTEIN-BARR VIRUS INFECTION
  2. PREDNISONE [Suspect]
     Indication: EPSTEIN-BARR VIRUS INFECTION
     Route: 048

REACTIONS (2)
  - DRUG TOXICITY [None]
  - PULMONARY HAEMORRHAGE [None]
